FAERS Safety Report 9080054 (Version 1)
Quarter: 2013Q1

REPORT INFORMATION
  Report Type: Report from Study
  Country: US (occurrence: US)
  Receive Date: 20130130
  Receipt Date: 20130130
  Transmission Date: 20140127
  Serious: No
  Sender: FDA-Public Use
  Company Number: US-ABBOTT-12P-163-0959958-00

PATIENT
  Age: 37 Year
  Sex: Female

DRUGS (6)
  1. HUMIRA 40 MG/0.8 ML PEN [Suspect]
     Indication: ANKYLOSING SPONDYLITIS
     Route: 058
     Dates: start: 20120214
  2. SULFAZINE [Concomitant]
     Indication: SWELLING
  3. INDOCIN [Concomitant]
     Indication: PAIN
  4. LYRICA [Concomitant]
     Indication: PAIN
     Dosage: 50MG DAILY
  5. UNKNOWN SLEEPING MEDICATION [Concomitant]
     Indication: INSOMNIA
  6. UNKNOWN ANXIETY MEDICATION [Concomitant]
     Indication: ANXIETY

REACTIONS (4)
  - Incorrect dose administered by device [Recovering/Resolving]
  - Injection site pain [Recovering/Resolving]
  - Pain [Recovering/Resolving]
  - Injection site urticaria [Recovering/Resolving]
